FAERS Safety Report 9148689 (Version 1)
Quarter: 2013Q1

REPORT INFORMATION
  Report Type: Spontaneous
  Country: US (occurrence: US)
  Receive Date: 20130308
  Receipt Date: 20130308
  Transmission Date: 20140127
  Serious: No
  Sender: FDA-Public Use
  Company Number: US-ENDO PHARMACEUTICALS INC.-OPCR20122061

PATIENT
  Sex: Male
  Weight: 94.89 kg

DRUGS (2)
  1. OPANA ER [Suspect]
     Indication: PAIN
     Route: 048
     Dates: start: 201211
  2. LOR-TAB [Concomitant]
     Indication: PAIN
     Dosage: 7.5 MG
     Route: 048
     Dates: end: 201211

REACTIONS (1)
  - Gait disturbance [Not Recovered/Not Resolved]
